FAERS Safety Report 9612460 (Version 1)
Quarter: 2013Q4

REPORT INFORMATION
  Report Type: Spontaneous
  Country: FR (occurrence: FR)
  Receive Date: 20131010
  Receipt Date: 20131010
  Transmission Date: 20140711
  Serious: Yes (Hospitalization)
  Sender: FDA-Public Use
  Company Number: FR-ASTRAZENECA-2013SE73509

PATIENT
  Age: 77 Year
  Sex: Female

DRUGS (16)
  1. INEXIUM [Suspect]
     Indication: PROPHYLAXIS
     Route: 048
     Dates: end: 20130821
  2. PLAVIX [Suspect]
     Route: 048
     Dates: end: 20130821
  3. ATARAX [Suspect]
     Route: 048
     Dates: end: 20130821
  4. PROZAC [Suspect]
     Route: 048
     Dates: start: 201308, end: 20130821
  5. LASILIX [Suspect]
     Route: 048
     Dates: end: 20130821
  6. DOLIPRANE [Concomitant]
  7. CALCIDOSE VITAMIN D [Concomitant]
  8. AMLODIPINE [Concomitant]
  9. CORTANCYL [Concomitant]
  10. EUPRESSYL [Concomitant]
  11. DIFFU K [Concomitant]
  12. MODOPAR [Concomitant]
  13. NOVONORM [Concomitant]
  14. LANTUS [Concomitant]
  15. TAHOR [Concomitant]
  16. BISOCE [Concomitant]

REACTIONS (4)
  - Acute respiratory distress syndrome [Unknown]
  - Erythropoiesis abnormal [Unknown]
  - Agranulocytosis [Recovered/Resolved]
  - Neutrophil count decreased [Recovered/Resolved]
